FAERS Safety Report 5933713-0 (Version None)
Quarter: 2008Q4

REPORT INFORMATION
  Report Type: 
  Country: None (occurrence: None)
  Receive Date: 20081029
  Receipt Date: 20080319
  Transmission Date: 20090506
  Serious: No
  Sender: FDA-Public Use
  Company Number: US-BAYER-200811131BCC

PATIENT
  Age: 30 Year
  Sex: Female
  Weight: 66 kg

DRUGS (3)
  1. MIDOL CRAMP AND BODY ACHE [Suspect]
     Indication: DYSMENORRHOEA
     Dates: start: 20080319
  2. MIDOL CRAMP AND BODY ACHE [Suspect]
  3. MIDOL [Suspect]
     Indication: DYSMENORRHOEA

REACTIONS (1)
  - DYSMENORRHOEA [None]
